FAERS Safety Report 8986451 (Version 1)
Quarter: 2012Q4

REPORT INFORMATION
  Report Type: 
  Country: FR (occurrence: FR)
  Receive Date: 20121226
  Receipt Date: 20121226
  Transmission Date: 20130627
  Serious: Yes (Hospitalization)
  Sender: FDA-Public Use
  Company Number: PHHY2012FR118601

PATIENT
  Age: 44 Year
  Sex: Female

DRUGS (12)
  1. VOLTARENE [Suspect]
     Route: 048
     Dates: start: 20121024
  2. IBUPROFEN [Suspect]
     Indication: GENITAL INFECTION
     Route: 048
     Dates: start: 20121022
  3. DOXYCYCLINE [Suspect]
     Dosage: 200 mg daily
     Dates: start: 20121028, end: 20121030
  4. ROCEPHINE [Suspect]
     Dosage: 1 g daily
     Route: 042
     Dates: start: 20121028, end: 20121030
  5. EXFORGE [Concomitant]
     Indication: HYPERTENSION
     Dates: start: 2010
  6. AMPICILLINE [Concomitant]
     Indication: GENITAL INFECTION
     Dates: start: 20121022
  7. OFLOCET [Concomitant]
     Dosage: UNK UKN, UNK
     Dates: start: 20121024
  8. OFLOCET [Concomitant]
     Dosage: 200 mg, BID
     Dates: start: 20121030, end: 20121111
  9. FLAGYL [Concomitant]
     Dosage: UNK UKN, UNK
     Dates: start: 20121024
  10. FLAGYL [Concomitant]
     Dosage: 500 mg, TID
     Dates: start: 20121028
  11. PARACETAMOL [Concomitant]
     Dates: start: 20121024
  12. SPASFON [Concomitant]
     Dates: start: 20121024

REACTIONS (5)
  - Genital infection [Unknown]
  - Pyrexia [Unknown]
  - Pelvic pain [Unknown]
  - Neutropenia [Recovered/Resolved]
  - Thrombocytopenia [Recovered/Resolved]
